FAERS Safety Report 14931208 (Version 4)
Quarter: 2018Q3

REPORT INFORMATION
  Report Type: Spontaneous
  Country: JP (occurrence: JP)
  Receive Date: 20180524
  Receipt Date: 20180703
  Transmission Date: 20181010
  Serious: Yes (Hospitalization, Other)
  Sender: FDA-Public Use
  Company Number: JP-ASTRAZENECA-2018SE67244

PATIENT
  Age: 10491 Day
  Sex: Female

DRUGS (3)
  1. THIATON [Suspect]
     Active Substance: TIQUIZIUM BROMIDE
     Indication: CHRONIC GASTRITIS
     Route: 048
     Dates: start: 20161021, end: 20161028
  2. CEREKINON [Suspect]
     Active Substance: TRIMEBUTINE
     Indication: CHRONIC GASTRITIS
     Route: 048
     Dates: start: 20161021, end: 20161028
  3. NEXIUM [Suspect]
     Active Substance: ESOMEPRAZOLE MAGNESIUM
     Indication: GASTROOESOPHAGEAL REFLUX DISEASE
     Route: 048
     Dates: start: 20161021, end: 20161028

REACTIONS (2)
  - Urticaria [Recovered/Resolved]
  - Drug eruption [Unknown]

NARRATIVE: CASE EVENT DATE: 20161029
